FAERS Safety Report 22382320 (Version 1)
Quarter: 2023Q2

REPORT INFORMATION
  Report Type: Report from Study
  Country: US (occurrence: US)
  Receive Date: 20230530
  Receipt Date: 20230530
  Transmission Date: 20230722
  Serious: Yes (Other)
  Sender: FDA-Public Use
  Company Number: US-JAZZ PHARMACEUTICALS-2023-US-005045

PATIENT
  Age: 69 Year
  Sex: Female

DRUGS (41)
  1. XYREM [Suspect]
     Active Substance: SODIUM OXYBATE
     Indication: Narcolepsy
     Dosage: UNK
  2. XYREM [Suspect]
     Active Substance: SODIUM OXYBATE
     Indication: Cataplexy
  3. XYREM [Suspect]
     Active Substance: SODIUM OXYBATE
     Indication: Somnolence
  4. BENZALKONIUM CHLORIDE [Suspect]
     Active Substance: BENZALKONIUM CHLORIDE
     Indication: Product used for unknown indication
  5. MAXALT MELT [Concomitant]
     Dosage: UNK
     Dates: start: 20150920
  6. PSYLLIUM HUSK POWDER [Concomitant]
     Dosage: UNK
     Dates: start: 20150920
  7. VITAMIN D3 [Concomitant]
     Active Substance: CHOLECALCIFEROL
     Dosage: 5000 UNIT
     Dates: start: 20150920
  8. MAGNESIUM [Concomitant]
     Active Substance: MAGNESIUM
     Dosage: UNK
     Dates: start: 20150301
  9. CLIMARA [Concomitant]
     Active Substance: ESTRADIOL
     Dosage: UNK
     Dates: start: 20180101
  10. MELATONIN [Concomitant]
     Active Substance: MELATONIN
     Dosage: UNK
     Dates: start: 20190703
  11. ZENPEP [Concomitant]
     Active Substance: PANCRELIPASE AMYLASE\PANCRELIPASE LIPASE\PANCRELIPASE PROTEASE
     Dosage: UNK
     Dates: start: 20220910
  12. CETIRIZINE HYDROCHLORIDE [Concomitant]
     Active Substance: CETIRIZINE HYDROCHLORIDE
     Indication: Food allergy
     Dosage: UNK
     Dates: start: 20220227
  13. CETIRIZINE HYDROCHLORIDE [Concomitant]
     Active Substance: CETIRIZINE HYDROCHLORIDE
     Indication: Inflammation
  14. PROBIOTIC BLEND [Concomitant]
     Dosage: UNK
     Dates: start: 20221207
  15. SODIUM BUTYRATE [Concomitant]
     Active Substance: SODIUM BUTYRATE
     Dosage: UNK
     Dates: start: 20221205
  16. IMODIUM A-D [Concomitant]
     Active Substance: LOPERAMIDE HYDROCHLORIDE
     Dosage: UNK
     Dates: start: 20220227
  17. LEVSIN [Concomitant]
     Active Substance: HYOSCYAMINE SULFATE
  18. HYDROCORTISONE [Concomitant]
     Active Substance: HYDROCORTISONE
     Indication: Eczema
  19. PROGESTERONE [Concomitant]
     Active Substance: PROGESTERONE
     Dosage: UNK, QD
     Dates: start: 20230207
  20. AIMOVIG [Concomitant]
     Active Substance: ERENUMAB-AOOE
     Dosage: UNK
     Dates: start: 20230203
  21. NUVIGIL [Concomitant]
     Active Substance: ARMODAFINIL
     Indication: Fatigue
     Dosage: UNK, QD
     Dates: start: 20230201
  22. KLONOPIN [Concomitant]
     Active Substance: CLONAZEPAM
     Dosage: UNK
     Dates: start: 20230120
  23. VALACYCLOVIR HYDROCHLORIDE [Concomitant]
     Active Substance: VALACYCLOVIR HYDROCHLORIDE
     Dosage: UNK, QD
     Dates: start: 20221118
  24. ESTRADIOL [Concomitant]
     Active Substance: ESTRADIOL
     Dosage: UNK, QW
     Dates: start: 20221017
  25. NALTREXONE [Concomitant]
     Active Substance: NALTREXONE
     Dosage: UNK
     Dates: start: 20220920
  26. PROPRANOLOL HYDROCHLORIDE [Concomitant]
     Active Substance: PROPRANOLOL HYDROCHLORIDE
     Indication: Tremor
     Dosage: UNK
     Dates: start: 20220705
  27. ARMODAFINIL [Concomitant]
     Active Substance: ARMODAFINIL
     Indication: Fatigue
     Dosage: 250
     Dates: start: 20210811
  28. ARMODAFINIL [Concomitant]
     Active Substance: ARMODAFINIL
     Indication: Narcolepsy
     Dosage: 60 MILLIGRAM
     Dates: start: 20210617
  29. CLONAZEPAM [Concomitant]
     Active Substance: CLONAZEPAM
     Dosage: UNK
     Dates: start: 20210511
  30. ZINC [Concomitant]
     Active Substance: ZINC
  31. VITAMIN K2 + D3 [COLECALCIFEROL;MENAQUINONE] [Concomitant]
  32. SIMILASE TOTAL [Concomitant]
  33. GLUTAMINE [LEVOGLUTAMIDE] [Concomitant]
  34. HERBALS\TURMERIC [Concomitant]
     Active Substance: HERBALS\TURMERIC
  35. OMEGA-3 FATTY ACIDS [Concomitant]
     Active Substance: OMEGA-3 FATTY ACIDS
  36. MAGNESIUM TARTRATE [Concomitant]
  37. PSYLLIUM [PLANTAGO INDICA] [Concomitant]
  38. CAFFEINE [Concomitant]
     Active Substance: CAFFEINE
  39. HUMAN IMMUNOGLOBULIN G [Concomitant]
     Active Substance: HUMAN IMMUNOGLOBULIN G
     Dosage: UNK
     Dates: start: 20230510
  40. MOTILPRO [Concomitant]
     Dosage: UNK
     Dates: start: 20230510
  41. SERIPHOS [Concomitant]
     Dosage: UNK
     Dates: start: 20230510

REACTIONS (4)
  - Pancreatic failure [Unknown]
  - Candida infection [Recovered/Resolved]
  - Drug hypersensitivity [Recovered/Resolved]
  - Food allergy [Unknown]

NARRATIVE: CASE EVENT DATE: 20220901
